FAERS Safety Report 5968531-0 (Version None)
Quarter: 2008Q4

REPORT INFORMATION
  Report Type: 
  Country: None (occurrence: None)
  Receive Date: 20081126
  Receipt Date: 20081118
  Transmission Date: 20090506
  Serious: Yes (Hospitalization, Other)
  Sender: FDA-Public Use
  Company Number: US-ELI_LILLY_AND_COMPANY-US200811004441

PATIENT
  Sex: Female

DRUGS (5)
  1. FORTEO [Suspect]
     Indication: OSTEOPOROSIS
     Dates: start: 20080101
  2. EVISTA [Suspect]
     Indication: OSTEOPOROSIS
     Dates: start: 20080101
  3. PLAVIX [Concomitant]
     Indication: THROMBOSIS
  4. STATIN                             /00084401/ [Concomitant]
     Indication: BLOOD CHOLESTEROL INCREASED
  5. CALCIUM CARBONATE [Concomitant]

REACTIONS (4)
  - COUGH [None]
  - OXYGEN SATURATION DECREASED [None]
  - PNEUMONIA [None]
  - SPEECH DISORDER [None]
